FAERS Safety Report 10640233 (Version 1)
Quarter: 2014Q4

REPORT INFORMATION
  Report Type: Spontaneous
  Country: US (occurrence: None)
  Receive Date: 20141208
  Receipt Date: 20141208
  Transmission Date: 20150529
  Serious: Yes (Life-Threatening)
  Sender: FDA-Public Use
  Company Number: None

PATIENT
  Age: 74 Year
  Sex: Male
  Weight: 72.58 kg

DRUGS (2)
  1. CORICIDIN HBP [Suspect]
     Active Substance: ACETAMINOPHEN\CHLORPHENIRAMINE MALEATE
     Indication: INFLUENZA
     Dosage: 2 PILLS
     Route: 048
     Dates: start: 20141204
  2. CORICIDIN HBP [Suspect]
     Active Substance: ACETAMINOPHEN\CHLORPHENIRAMINE MALEATE
     Indication: NASAL CONGESTION
     Dosage: 2 PILLS
     Route: 048
     Dates: start: 20141204

REACTIONS (6)
  - Abdominal pain upper [None]
  - Dizziness [None]
  - Dysstasia [None]
  - Blood pressure decreased [None]
  - Visual impairment [None]
  - Cold sweat [None]

NARRATIVE: CASE EVENT DATE: 20141204
